FAERS Safety Report 7148618-X (Version None)
Quarter: 2010Q4

REPORT INFORMATION
  Report Type: 
  Country: None (occurrence: None)
  Receive Date: 20101209
  Receipt Date: 20100622
  Transmission Date: 20110411
  Serious: No
  Sender: FDA-Public Use
  Company Number: A0868308A

PATIENT
  Sex: Female

DRUGS (2)
  1. AVANDAMET [Suspect]
  2. UNSPECIFIED MEDICATIONS [Suspect]

REACTIONS (1)
  - DRUG INTERACTION [None]
